FAERS Safety Report 9951445 (Version 1)
Quarter: 2014Q1

REPORT INFORMATION
  Report Type: Report from Study
  Country: US (occurrence: US)
  Receive Date: 20140304
  Receipt Date: 20140304
  Transmission Date: 20141002
  Serious: No
  Sender: FDA-Public Use
  Company Number: US-ABBVIE-13P-163-1070997-00

PATIENT
  Sex: Female

DRUGS (1)
  1. HUMIRA [Suspect]
     Indication: COLITIS ULCERATIVE

REACTIONS (10)
  - Bowel movement irregularity [Unknown]
  - Diarrhoea [Unknown]
  - Diarrhoea [Unknown]
  - Haematochezia [Unknown]
  - Abnormal faeces [Unknown]
  - Drug ineffective [Unknown]
  - Colitis ulcerative [Unknown]
  - Clostridium difficile colitis [Unknown]
  - Abdominal pain upper [Unknown]
  - Influenza [Unknown]
